FAERS Safety Report 14073767 (Version 1)
Quarter: 2017Q4

REPORT INFORMATION
  Report Type: Report from Study
  Country: US (occurrence: US)
  Receive Date: 20171011
  Receipt Date: 20171011
  Transmission Date: 20180321
  Serious: Yes (Other)
  Sender: FDA-Public Use
  Company Number: PHEH2017US032382

PATIENT
  Sex: Female

DRUGS (1)
  1. COSENTYX [Suspect]
     Active Substance: SECUKINUMAB
     Indication: PRODUCT USED FOR UNKNOWN INDICATION
     Dosage: UNK UNK, QMO
     Route: 058

REACTIONS (7)
  - Decreased immune responsiveness [Unknown]
  - Ankylosing spondylitis [Unknown]
  - Influenza [Unknown]
  - Inflammation [Unknown]
  - Weight increased [Unknown]
  - Arthritis [Unknown]
  - Gait disturbance [Unknown]
